FAERS Safety Report 18387400 (Version 1)
Quarter: 2020Q4

REPORT INFORMATION
  Report Type: Spontaneous
  Country: US (occurrence: US)
  Receive Date: 20201015
  Receipt Date: 20201015
  Transmission Date: 20210114
  Serious: No
  Sender: FDA-Public Use
  Company Number: None

PATIENT
  Age: 68 Year
  Sex: Female
  Weight: 49.9 kg

DRUGS (1)
  1. IBANDRONATE 3MG/3ML SYRINGE, 3MG/3M [Suspect]
     Active Substance: IBANDRONATE SODIUM
     Indication: SENILE OSTEOPOROSIS
     Dosage: ?          OTHER FREQUENCY:EVERY3MONTHS;?
     Route: 042
     Dates: start: 202001

REACTIONS (2)
  - Hypovitaminosis [None]
  - Electrolyte depletion [None]
